FAERS Safety Report 9210429 (Version 1)
Quarter: 2013Q2

REPORT INFORMATION
  Report Type: Spontaneous
  Country: US (occurrence: US)
  Receive Date: 20130404
  Receipt Date: 20130404
  Transmission Date: 20140414
  Serious: Yes (Hospitalization)
  Sender: FDA-Public Use
  Company Number: US-BAYER-2013-039991

PATIENT
  Age: 40 Year
  Sex: Female
  Weight: 72.7 kg

DRUGS (3)
  1. YAZ [Suspect]
     Indication: UTERINE HAEMORRHAGE
     Dosage: UNK
  2. IBUPROFEN [Concomitant]
  3. ZANTAC [Concomitant]

REACTIONS (2)
  - Pulmonary embolism [None]
  - Pulmonary infarction [None]
